FAERS Safety Report 22176192 (Version 1)
Quarter: 2023Q2

REPORT INFORMATION
  Report Type: Spontaneous
  Country: US (occurrence: None)
  Receive Date: 20230404
  Receipt Date: 20230404
  Transmission Date: 20230721
  Serious: Yes (Other)
  Sender: FDA-Public Use
  Company Number: None

PATIENT
  Age: 24 Year
  Sex: Female
  Weight: 70.8 kg

DRUGS (5)
  1. STRIBILD [Suspect]
     Active Substance: COBICISTAT\ELVITEGRAVIR\EMTRICITABINE\TENOFOVIR DISOPROXIL FUMARATE
     Indication: HIV infection
     Dosage: FREQUENCY : DAILY;?
     Route: 048
     Dates: start: 20170220, end: 20230216
  2. vitamin b12 500 mcg [Concomitant]
     Dates: start: 20170221
  3. folic acid 1 mg daily [Concomitant]
     Dates: start: 20170221
  4. olanzapine 10 mg ODT [Concomitant]
  5. omega 2400 mg [Concomitant]
     Dates: start: 20170922

REACTIONS (3)
  - Hepatic steatosis [None]
  - Hepatic steatosis [None]
  - Therapy cessation [None]

NARRATIVE: CASE EVENT DATE: 20211020
